FAERS Safety Report 6168184-5 (Version None)
Quarter: 2009Q2

REPORT INFORMATION
  Report Type: 
  Country: None (occurrence: None)
  Receive Date: 20090427
  Receipt Date: 20090420
  Transmission Date: 20091009
  Serious: Yes (Other)
  Sender: FDA-Public Use
  Company Number: PHEH2008US02651

PATIENT
  Sex: Female

DRUGS (5)
  1. ZOMETA [Suspect]
  2. TAMOXIFEN CITRATE [Concomitant]
  3. FOSAMAX [Concomitant]
  4. PROZAC [Concomitant]
  5. LEVOXYL [Concomitant]

REACTIONS (8)
  - ANHEDONIA [None]
  - ANXIETY [None]
  - ARTIFICIAL CROWN PROCEDURE [None]
  - DISABILITY [None]
  - GENERAL PHYSICAL HEALTH DETERIORATION [None]
  - OSTEONECROSIS [None]
  - PAIN [None]
  - PERIODONTITIS [None]
